FAERS Safety Report 5121887-3 (Version None)
Quarter: 2006Q4

REPORT INFORMATION
  Report Type: 
  Country: None (occurrence: None)
  Receive Date: 20061003
  Receipt Date: 20060918
  Transmission Date: 20070319
  Serious: Yes (Hospitalization)
  Sender: FDA-Public Use
  Company Number: S06-FRA-01386-01

PATIENT
  Age: 73 Year
  Sex: Male

DRUGS (15)
  1. MEMANTINE HCL [Suspect]
     Indication: DEMENTIA ALZHEIMER'S TYPE
     Dosage: 10 MG BID PO
     Route: 048
     Dates: start: 20050301, end: 20060403
  2. HEPARIN CALCIUM [Suspect]
  3. ARICEPT [Concomitant]
  4. SECTRAL [Concomitant]
  5. PERINDOPRIL ERBUMINE [Concomitant]
  6. LASIX [Concomitant]
  7. IKOREL (NICORANDIL) [Concomitant]
  8. KARVEA HCT [Concomitant]
  9. ASPIRIN [Concomitant]
  10. POTASSIUM CHLORIDE [Concomitant]
  11. PRAVASTATIN [Concomitant]
  12. CORVASAL (MOLSIDOMINE) [Concomitant]
  13. DUPHALAC [Concomitant]
  14. OMEPRAZOLE [Concomitant]
  15. MACROGOL [Concomitant]

REACTIONS (7)
  - ATRIAL FLUTTER [None]
  - BLOOD SODIUM INCREASED [None]
  - C-REACTIVE PROTEIN INCREASED [None]
  - CONSCIOUSNESS FLUCTUATING [None]
  - FALL [None]
  - OVERDOSE [None]
  - SOMNOLENCE [None]
